FAERS Safety Report 5564790-7 (Version None)
Quarter: 2007Q4

REPORT INFORMATION
  Report Type: 
  Country: None (occurrence: None)
  Receive Date: 20071212
  Receipt Date: 20071130
  Transmission Date: 20080405
  Serious: Yes (Other)
  Sender: FDA-Public Use
  Company Number: DSJ-2007-06105

PATIENT
  Sex: Male

DRUGS (1)
  1. OLMESARTAN MEDOXOMIL [Suspect]
     Dosage: 20 MG, PER ORAL
     Route: 048

REACTIONS (2)
  - BLOOD POTASSIUM INCREASED [None]
  - RENAL IMPAIRMENT [None]
